FAERS Safety Report 7406587-9 (Version None)
Quarter: 2011Q2

REPORT INFORMATION
  Report Type: 
  Country: None (occurrence: None)
  Receive Date: 20110411
  Receipt Date: 20110406
  Transmission Date: 20111010
  Serious: Yes (Other)
  Sender: FDA-Public Use
  Company Number: FR-SANOFI-AVENTIS-2011SA018666

PATIENT
  Sex: Female

DRUGS (6)
  1. MABTHERA [Suspect]
     Indication: LYMPHOMA
     Route: 042
     Dates: start: 20110309, end: 20110309
  2. DEXAMETHASONE [Concomitant]
     Indication: LYMPHOMA
     Route: 042
     Dates: start: 20110311, end: 20110312
  3. CYTARABINE [Suspect]
     Indication: LYMPHOMA
     Route: 042
     Dates: start: 20110310, end: 20110311
  4. POLARAMINE [Concomitant]
     Route: 065
     Dates: start: 20110309, end: 20110309
  5. SOLU-MEDROL [Concomitant]
     Indication: PROPHYLAXIS
     Route: 065
     Dates: start: 20110309, end: 20110309
  6. ELOXATIN [Suspect]
     Indication: LYMPHOMA
     Route: 042
     Dates: start: 20110310, end: 20110310

REACTIONS (2)
  - PYREXIA [None]
  - OXYGEN SATURATION DECREASED [None]
